FAERS Safety Report 20671350 (Version 1)
Quarter: 2022Q2

REPORT INFORMATION
  Report Type: Spontaneous
  Country: US (occurrence: US)
  Receive Date: 20220404
  Receipt Date: 20220404
  Transmission Date: 20220721
  Serious: No
  Sender: FDA-Public Use
  Company Number: US-SANOFI-01039489

PATIENT
  Age: 2 Month
  Sex: Female

DRUGS (1)
  1. LANTUS [Suspect]
     Active Substance: INSULIN GLARGINE
     Indication: Neonatal diabetes mellitus
     Dosage: 0.001 IU, QD

REACTIONS (2)
  - Product use issue [Unknown]
  - Product preparation issue [Unknown]
